FAERS Safety Report 5293750-9 (Version None)
Quarter: 2007Q2

REPORT INFORMATION
  Report Type: 
  Country: None (occurrence: None)
  Receive Date: 20070411
  Receipt Date: 20070330
  Transmission Date: 20071010
  Serious: Yes (Life-Threatening)
  Sender: FDA-Public Use
  Company Number: FR-PFIZER INC-2007017990

PATIENT
  Age: 79 Year
  Sex: Female

DRUGS (5)
  1. TRIFLUCAN [Suspect]
  2. ARCALION [Suspect]
     Route: 048
  3. PRIMPERAN INJ [Suspect]
  4. DESLORATADINE [Suspect]
  5. ESIDRIX [Suspect]

REACTIONS (4)
  - RENAL FAILURE ACUTE [None]
  - SEPSIS [None]
  - STAPHYLOCOCCAL SEPSIS [None]
  - STEVENS-JOHNSON SYNDROME [None]
